FAERS Safety Report 7629209-0 (Version None)
Quarter: 2011Q3

REPORT INFORMATION
  Report Type: 
  Country: None (occurrence: None)
  Receive Date: 20110722
  Receipt Date: 20110711
  Transmission Date: 20111222
  Serious: Yes (Disabling)
  Sender: FDA-Public Use
  Company Number: PHHY2011FR60578

PATIENT
  Age: 31 Year
  Sex: Male

DRUGS (3)
  1. ALEPSAL [Concomitant]
     Dosage: UNK UKN, QD
  2. VENTOLIN [Concomitant]
     Indication: ASTHMA
     Dosage: OCCASIONALLY
  3. TEGRETOL [Suspect]
     Indication: EPILEPSY
     Dosage: 1 TSP (ONE SPOON ), BID
     Route: 048

REACTIONS (5)
  - INFERTILITY MALE [None]
  - SEMEN ANALYSIS ABNORMAL [None]
  - VARICOCELE [None]
  - SPERMATOZOA ABNORMAL [None]
  - SPERM CONCENTRATION DECREASED [None]
